FAERS Safety Report 11113666 (Version 1)
Quarter: 2015Q2

REPORT INFORMATION
  Report Type: Spontaneous
  Country: GB (occurrence: GB)
  Receive Date: 20150514
  Receipt Date: 20150514
  Transmission Date: 20150821
  Serious: Yes (Life-Threatening, Hospitalization, Other)
  Sender: FDA-Public Use
  Company Number: GB-BRISTOL-MYERS SQUIBB COMPANY-BMS-2015-028428

PATIENT
  Age: 91 Year
  Sex: Female
  Weight: 52 kg

DRUGS (4)
  1. ELIQUIS [Suspect]
     Active Substance: APIXABAN
     Indication: PRODUCT USED FOR UNKNOWN INDICATION
     Dosage: UNK
     Route: 065
     Dates: start: 20150404
  2. BRINZOLAMIDE [Concomitant]
     Active Substance: BRINZOLAMIDE
     Indication: PRODUCT USED FOR UNKNOWN INDICATION
     Dosage: ONE DROP TO BOTH EYES
     Route: 050
     Dates: start: 20141128
  3. LATANOPROST. [Concomitant]
     Active Substance: LATANOPROST
     Indication: CEREBROVASCULAR ACCIDENT PROPHYLAXIS
     Dosage: AT NIGHT, ONE TO EACH EYE
     Route: 050
     Dates: start: 20141128, end: 20150204
  4. WARFARIN SODIUM. [Concomitant]
     Active Substance: WARFARIN SODIUM
     Indication: CEREBROVASCULAR ACCIDENT PROPHYLAXIS
     Dosage: TAKE ONE AS DIRECTED BY ANTICOAGULATION CLINIC
     Route: 065
     Dates: start: 20141128, end: 20150204

REACTIONS (3)
  - Syncope [Unknown]
  - Haemorrhagic stroke [Recovering/Resolving]
  - Head injury [Unknown]

NARRATIVE: CASE EVENT DATE: 20150404
